FAERS Safety Report 8900497 (Version 2)
Quarter: 2012Q4

REPORT INFORMATION
  Report Type: 
  Country: JP (occurrence: JP)
  Receive Date: 20121109
  Receipt Date: 20121121
  Transmission Date: 20130627
  Serious: Yes (Hospitalization)
  Sender: FDA-Public Use
  Company Number: JP-NAPPMUNDI-GBR-2012-0011681

PATIENT
  Age: 68 Year
  Sex: Male

DRUGS (13)
  1. BUPRENORPHINE TRANSDERMAL SYSTEM 5 MG [Suspect]
     Indication: PAIN
     Dosage: 5 mcg, q1h
     Route: 062
     Dates: start: 20120926
  2. BUPRENORPHINE TRANSDERMAL SYSTEM 5 MG [Suspect]
     Dosage: 5 mcg, q1h
     Route: 062
     Dates: start: 20120821, end: 20120913
  3. TRAMACET [Suspect]
     Indication: PAIN
     Dosage: 2 tablet, daily
     Route: 048
     Dates: start: 20120918, end: 20120925
  4. TRAMACET [Suspect]
     Dosage: 1 tablet, daily
     Route: 048
     Dates: start: 20120914, end: 20120917
  5. NAUZELIN [Concomitant]
     Dosage: 10 mg, tid
     Dates: start: 20120914
  6. VEGETAMIN A [Concomitant]
     Route: 065
  7. VEGETAMIN B [Concomitant]
     Route: 065
  8. ALINAMIN                           /00257802/ [Concomitant]
     Route: 065
  9. EURODIN                            /00425901/ [Concomitant]
     Route: 065
  10. HALCION [Concomitant]
     Route: 065
  11. XALATAN [Concomitant]
     Route: 065
  12. HYALEIN [Concomitant]
     Route: 065
  13. MIKELAN [Concomitant]

REACTIONS (4)
  - Intervertebral disc operation [Unknown]
  - Constipation [Not Recovered/Not Resolved]
  - Application site warmth [Not Recovered/Not Resolved]
  - Nausea [Recovered/Resolved]
